FAERS Safety Report 6242427-1 (Version None)
Quarter: 2009Q2

REPORT INFORMATION
  Report Type: 
  Country: None (occurrence: None)
  Receive Date: 20090624
  Receipt Date: 20090616
  Transmission Date: 20091009
  Serious: Yes (Other)
  Sender: FDA-Public Use
  Company Number: US-JNJFOC-20090605693

PATIENT
  Sex: Female
  Weight: 72.58 kg

DRUGS (3)
  1. ORTHO EVRA [Suspect]
     Indication: ENDOMETRIOSIS
     Route: 062
  2. DARVOCET [Concomitant]
     Indication: ARTHRALGIA
     Route: 048
  3. VICODIN [Concomitant]
     Indication: ARTHRALGIA
     Route: 048

REACTIONS (2)
  - CHEST PAIN [None]
  - OFF LABEL USE [None]
